FAERS Safety Report 8274110-5 (Version None)
Quarter: 2012Q2

REPORT INFORMATION
  Report Type: 
  Country: None (occurrence: None)
  Receive Date: 20120411
  Receipt Date: 20120408
  Transmission Date: 20120825
  Serious: Yes (Other)
  Sender: FDA-Public Use
  Company Number: NO-PFIZER INC-2012089036

PATIENT
  Age: 32 Year
  Sex: Female

DRUGS (1)
  1. ZOLOFT [Suspect]
     Indication: DEPRESSION
     Dosage: 100 MG, UNK

REACTIONS (4)
  - DISSOCIATION [None]
  - SUICIDAL IDEATION [None]
  - EMOTIONAL DISTRESS [None]
  - WITHDRAWAL SYNDROME [None]
